FAERS Safety Report 6119570-0 (Version None)
Quarter: 2009Q1

REPORT INFORMATION
  Report Type: 
  Country: None (occurrence: None)
  Receive Date: 20090316
  Receipt Date: 20090312
  Transmission Date: 20090719
  Serious: Yes (Other)
  Sender: FDA-Public Use
  Company Number: B0564651A

PATIENT
  Age: 60 Year
  Sex: Female

DRUGS (2)
  1. TYVERB [Suspect]
     Indication: BREAST CANCER
     Dosage: 1500MG PER DAY
     Route: 048
     Dates: start: 20081226, end: 20090123
  2. RADIOTHERAPY [Concomitant]
     Indication: BREAST CANCER
     Dosage: 66GY CUMULATIVE DOSE
     Dates: start: 20081212, end: 20090130

REACTIONS (4)
  - PAIN [None]
  - RADIATION SKIN INJURY [None]
  - RASH [None]
  - SKIN INFECTION [None]
